FAERS Safety Report 6732214-X (Version None)
Quarter: 2010Q2

REPORT INFORMATION
  Report Type: 
  Country: None (occurrence: None)
  Receive Date: 20100519
  Receipt Date: 20100511
  Transmission Date: 20101027
  Serious: Yes (Other)
  Sender: FDA-Public Use
  Company Number: A0839442A

PATIENT
  Sex: Female

DRUGS (2)
  1. PAXIL [Suspect]
     Indication: DEPRESSION
     Dosage: 30MG PER DAY
     Route: 048
     Dates: start: 20080101
  2. LEVOTHYROXINE SODIUM [Concomitant]

REACTIONS (5)
  - DYSKINESIA [None]
  - FACIAL PALSY [None]
  - HYPOTHYROIDISM [None]
  - PAIN IN EXTREMITY [None]
  - SLUGGISHNESS [None]
